FAERS Safety Report 25902610 (Version 1)
Quarter: 2025Q4

REPORT INFORMATION
  Report Type: Spontaneous
  Country: CN (occurrence: CN)
  Receive Date: 20251009
  Receipt Date: 20251009
  Transmission Date: 20260118
  Serious: Yes (Other)
  Sender: ELI LILLY AND COMPANY
  Company Number: CN-Merck Healthcare KGaA-2025049470

PATIENT
  Age: 49 Year
  Sex: Male
  Weight: 64 kg

DRUGS (3)
  1. ERBITUX [Suspect]
     Active Substance: CETUXIMAB
     Indication: Tongue neoplasm malignant stage unspecified
     Dosage: 460 MG, UNK
     Route: 041
     Dates: start: 20250811, end: 20250811
  2. CARBOPLATIN [Concomitant]
     Active Substance: CARBOPLATIN
     Indication: Tongue neoplasm malignant stage unspecified
     Route: 041
     Dates: start: 20250811, end: 20250811
  3. PACLITAXEL [Concomitant]
     Active Substance: PACLITAXEL
     Indication: Tongue neoplasm malignant stage unspecified
     Route: 041
     Dates: start: 20250811, end: 20250811

REACTIONS (1)
  - Granulocyte count decreased [Recovering/Resolving]

NARRATIVE: CASE EVENT DATE: 20250814
